FAERS Safety Report 7765343-2 (Version None)
Quarter: 2011Q3

REPORT INFORMATION
  Report Type: 
  Country: None (occurrence: None)
  Receive Date: 20110921
  Receipt Date: 20110914
  Transmission Date: 20111222
  Serious: Yes (Death, Other)
  Sender: FDA-Public Use
  Company Number: US-BAYER-201041660NA

PATIENT
  Age: 62 Year
  Sex: Female
  Weight: 48 kg

DRUGS (20)
  1. AVELOX [Concomitant]
     Indication: PSEUDOMONAS TEST POSITIVE
     Dosage: UNK
     Dates: start: 20070516
  2. TRASYLOL [Suspect]
     Indication: CONGENITAL ANOMALY
  3. LASIX [Concomitant]
  4. SIMVASTATIN [Concomitant]
  5. MILRINONE [Concomitant]
  6. TRASYLOL [Suspect]
     Indication: LEFT VENTRICULAR DYSFUNCTION
  7. CELEBREX [Concomitant]
  8. TRASYLOL [Suspect]
     Indication: CORONARY ARTERY BYPASS
     Dosage: UNK
     Dates: start: 20070508
  9. COREG [Concomitant]
  10. PROTAMINE [Concomitant]
  11. AMICAR [Concomitant]
  12. TRASYLOL [Suspect]
     Indication: CORONARY ARTERY DISEASE
  13. COUMADIN [Concomitant]
  14. INSULIN [Concomitant]
  15. TRASYLOL [Suspect]
     Indication: MITRAL VALVE REPAIR
  16. VASOTEC [Concomitant]
  17. HEPARIN [Concomitant]
  18. TRASYLOL [Suspect]
     Indication: MITRAL VALVE INCOMPETENCE
  19. TRASYLOL [Suspect]
     Indication: CARDIAC FAILURE CONGESTIVE
  20. NITROGLYCERIN [Concomitant]
     Dosage: UNK
     Route: 060
     Dates: start: 20070508

REACTIONS (11)
  - RENAL INJURY [None]
  - ANXIETY [None]
  - UNEVALUABLE EVENT [None]
  - MULTI-ORGAN FAILURE [None]
  - RENAL IMPAIRMENT [None]
  - RENAL FAILURE [None]
  - PAIN [None]
  - STRESS [None]
  - EMOTIONAL DISTRESS [None]
  - FEAR [None]
  - DEATH [None]
